FAERS Safety Report 24610489 (Version 4)
Quarter: 2025Q3

REPORT INFORMATION
  Report Type: Report from Study
  Country: US (occurrence: US)
  Receive Date: 20241112
  Receipt Date: 20250912
  Transmission Date: 20251021
  Serious: No
  Sender: SUNOVION
  Company Number: US-SMPA-2024SPA004903AA

PATIENT
  Age: 66 Year
  Sex: Male

DRUGS (2)
  1. ORGOVYX [Suspect]
     Active Substance: RELUGOLIX
     Indication: Prostate cancer
     Dosage: 120 MG, QD
     Route: 048
     Dates: start: 20231010
  2. XTANDI [Concomitant]
     Active Substance: ENZALUTAMIDE
     Indication: Prostate cancer
     Dosage: 160 MG, QD
     Dates: start: 20241105

REACTIONS (8)
  - Abdominal distension [Unknown]
  - Fatigue [Unknown]
  - Constipation [Unknown]
  - Feeling hot [Unknown]
  - Asthenia [Unknown]
  - Weight increased [Unknown]
  - Adverse event [Unknown]
  - Incorrect dose administered [Unknown]
